FAERS Safety Report 19523276 (Version 3)
Quarter: 2021Q4

REPORT INFORMATION
  Report Type: Report from Study
  Country: MX (occurrence: MX)
  Receive Date: 20210712
  Receipt Date: 20211129
  Transmission Date: 20220303
  Serious: Yes (Other)
  Sender: FDA-Public Use
  Company Number: MX-002147023-NVSC2021MX150058

PATIENT

DRUGS (2)
  1. RUXOLITINIB [Suspect]
     Active Substance: RUXOLITINIB
     Indication: Polycythaemia vera
     Dosage: 1 DF, QD (20 MG)
     Route: 048
     Dates: start: 2008
  2. RUXOLITINIB [Suspect]
     Active Substance: RUXOLITINIB
     Indication: Myelofibrosis

REACTIONS (8)
  - Hiatus hernia [Unknown]
  - Nervousness [Unknown]
  - Off label use [Unknown]
  - Oesophageal food impaction [Recovering/Resolving]
  - Post procedural complication [Unknown]
  - Stress [Unknown]
  - Inappropriate schedule of product administration [Unknown]
  - Asthenia [Unknown]

NARRATIVE: CASE EVENT DATE: 20080101
